FAERS Safety Report 16760463 (Version 1)
Quarter: 2019Q3

REPORT INFORMATION
  Report Type: Spontaneous
  Country: JP (occurrence: JP)
  Receive Date: 20190830
  Receipt Date: 20190830
  Transmission Date: 20191005
  Serious: Yes (Death)
  Sender: FDA-Public Use
  Company Number: PHHY2019JP202101

PATIENT
  Age: 56 Year
  Sex: Male

DRUGS (1)
  1. VORICONAZOLE. [Suspect]
     Active Substance: VORICONAZOLE
     Indication: BRONCHOPULMONARY ASPERGILLOSIS
     Route: 065

REACTIONS (6)
  - Metastases to lymph nodes [Fatal]
  - Neuroendocrine carcinoma of the skin [Fatal]
  - Pigmentation disorder [Fatal]
  - Actinic keratosis [Fatal]
  - Metastases to liver [Fatal]
  - Macule [Fatal]
